FAERS Safety Report 5781417-X (Version None)
Quarter: 2008Q2

REPORT INFORMATION
  Report Type: 
  Country: None (occurrence: None)
  Receive Date: 20080623
  Receipt Date: 20070315
  Transmission Date: 20081010
  Serious: No
  Sender: FDA-Public Use
  Company Number: US-ASTRAZENECA-2007UW04996

PATIENT
  Age: 50 Year
  Sex: Male
  Weight: 62.6 kg

DRUGS (2)
  1. ENTOCORT EC [Suspect]
     Indication: CROHN'S DISEASE
     Route: 048
  2. PENTASA [Concomitant]
     Indication: CROHN'S DISEASE

REACTIONS (1)
  - POOR QUALITY SLEEP [None]
